FAERS Safety Report 24446998 (Version 2)
Quarter: 2024Q4

REPORT INFORMATION
  Report Type: Spontaneous
  Country: TR (occurrence: TR)
  Receive Date: 20241016
  Receipt Date: 20241128
  Transmission Date: 20250115
  Serious: Yes (Other)
  Sender: BAUSCH AND LOMB
  Company Number: TR-BAUSCHBL-2024BNL033440

PATIENT
  Age: 37 Year
  Sex: Male

DRUGS (4)
  1. LOTEMAX [Suspect]
     Active Substance: LOTEPREDNOL ETABONATE
     Indication: Ocular hyperaemia
     Route: 047
     Dates: start: 20240814, end: 20240815
  2. LOTEMAX [Suspect]
     Active Substance: LOTEPREDNOL ETABONATE
     Indication: Conjunctivitis allergic
  3. NEPAFENAC [Suspect]
     Active Substance: NEPAFENAC
     Indication: Ocular hyperaemia
     Route: 047
     Dates: start: 20240814, end: 20240815
  4. NEPAFENAC [Suspect]
     Active Substance: NEPAFENAC
     Indication: Conjunctivitis allergic

REACTIONS (4)
  - Vitreous degeneration [Not Recovered/Not Resolved]
  - Visual impairment [Not Recovered/Not Resolved]
  - Eye pain [Recovered/Resolved with Sequelae]
  - Headache [Recovered/Resolved with Sequelae]

NARRATIVE: CASE EVENT DATE: 20240815
